FAERS Safety Report 8506087-9 (Version None)
Quarter: 2012Q3

REPORT INFORMATION
  Report Type: 
  Country: None (occurrence: None)
  Receive Date: 20120712
  Receipt Date: 20120704
  Transmission Date: 20120928
  Serious: Yes (Hospitalization)
  Sender: FDA-Public Use
  Company Number: ES-ASTRAZENECA-2012SE45651

PATIENT
  Age: 86 Year
  Sex: Female

DRUGS (1)
  1. SEROQUEL [Suspect]
     Dosage: UNKNOWN DOSE TWO TIMES A DAY
     Route: 048
     Dates: start: 20100101, end: 20100610

REACTIONS (4)
  - GAIT DISTURBANCE [None]
  - FALL [None]
  - HIP FRACTURE [None]
  - COGNITIVE DISORDER [None]
